FAERS Safety Report 17325774 (Version 1)
Quarter: 2020Q1

REPORT INFORMATION
  Report Type: Spontaneous
  Country: CO (occurrence: CO)
  Receive Date: 20200127
  Receipt Date: 20200127
  Transmission Date: 20200409
  Serious: Yes (Death, Other)
  Sender: FDA-Public Use
  Company Number: CO-PFIZER INC-2019506804

PATIENT
  Sex: Female

DRUGS (1)
  1. INLYTA [Suspect]
     Active Substance: AXITINIB
     Indication: RENAL CANCER STAGE IV
     Dosage: 5 MG, UNK
     Route: 048
     Dates: start: 201703, end: 201911

REACTIONS (5)
  - Blood creatinine increased [Unknown]
  - Death [Fatal]
  - Haemoglobin decreased [Unknown]
  - Neoplasm progression [Unknown]
  - Toxicity to various agents [Unknown]

NARRATIVE: CASE EVENT DATE: 2019
